FAERS Safety Report 4692882-3 (Version None)
Quarter: 2005Q2

REPORT INFORMATION
  Report Type: 
  Country: None (occurrence: None)
  Receive Date: 20050615
  Receipt Date: 20050607
  Transmission Date: 20051028
  Serious: Yes (Other)
  Sender: FDA-Public Use
  Company Number: 2005081926

PATIENT
  Age: 79 Year
  Sex: Female

DRUGS (1)
  1. LIPITOR [Suspect]
     Indication: HYPERLIPIDAEMIA
     Dosage: 5 MG (1 D), ORAL
     Route: 048
     Dates: start: 20050430, end: 20050518

REACTIONS (2)
  - BILE DUCT CANCER [None]
  - HEPATIC ENZYME INCREASED [None]
